FAERS Safety Report 10335036 (Version 1)
Quarter: 2014Q3

REPORT INFORMATION
  Report Type: Spontaneous
  Country: US (occurrence: None)
  Receive Date: 20140722
  Receipt Date: 20140722
  Transmission Date: 20150326
  Serious: Yes (Other)
  Sender: FDA-Public Use
  Company Number: None

PATIENT
  Age: 62 Year
  Sex: Female
  Weight: 54.43 kg

DRUGS (5)
  1. LIDOCAINE PATCH [Suspect]
     Active Substance: LIDOCAINE
     Indication: FRACTURE
     Dosage: 750MG LIDOCAINE, 50MG PER GRAM ADHESIVE?UP TO THREE PATCHES TO AFFECTED AREA?USE UP TO 12 HOURS PER 24 HOUR PERIOD ?ON THE SKIN
     Route: 061
     Dates: start: 20140415, end: 20140615
  2. IBUPROFEN. [Concomitant]
     Active Substance: IBUPROFEN
  3. PREMPHASE [Concomitant]
     Active Substance: ESTROGENS, CONJUGATED\MEDROXYPROGESTERONE ACETATE
  4. BENADRYL [Concomitant]
     Active Substance: DIPHENHYDRAMINE HYDROCHLORIDE
  5. LIDOCAINE PATCH [Suspect]
     Active Substance: LIDOCAINE
     Indication: PRODUCT QUALITY ISSUE
     Dosage: 750MG LIDOCAINE, 50MG PER GRAM ADHESIVE?UP TO THREE PATCHES TO AFFECTED AREA?USE UP TO 12 HOURS PER 24 HOUR PERIOD ?ON THE SKIN
     Route: 061
     Dates: start: 20140415, end: 20140615

REACTIONS (4)
  - Feeling abnormal [None]
  - Palpitations [None]
  - Respiratory disorder [None]
  - Device leakage [None]

NARRATIVE: CASE EVENT DATE: 20140415
